FAERS Safety Report 4773299-X (Version None)
Quarter: 2005Q3

REPORT INFORMATION
  Report Type: 
  Country: None (occurrence: None)
  Receive Date: 20050916
  Receipt Date: 20050902
  Transmission Date: 20060218
  Serious: Yes (Other)
  Sender: FDA-Public Use
  Company Number: 2004-00267

PATIENT
  Age: 80 Year
  Sex: Male

DRUGS (1)
  1. VELCADE [Suspect]
     Dates: start: 20030811, end: 20040701

REACTIONS (3)
  - BLOOD CREATININE INCREASED [None]
  - OTOTOXICITY [None]
  - VISION BLURRED [None]
